FAERS Safety Report 25189788 (Version 2)
Quarter: 2025Q3

REPORT INFORMATION
  Report Type: Spontaneous
  Country: ID (occurrence: ID)
  Receive Date: 20250411
  Receipt Date: 20250810
  Transmission Date: 20251021
  Serious: Yes (Death, Other)
  Sender: ALEXION PHARMACEUTICALS
  Company Number: ID-AstraZeneca-CH-00845374A

PATIENT
  Age: 60 Year
  Sex: Male

DRUGS (3)
  1. LYNPARZA [Suspect]
     Active Substance: OLAPARIB
     Indication: Prostate cancer metastatic
     Dosage: 300 MILLIGRAM, BID
     Dates: start: 20240718, end: 20241019
  2. KETOCONAZOLE [Concomitant]
     Active Substance: KETOCONAZOLE
     Route: 065
  3. PREDNISONE [Concomitant]
     Active Substance: PREDNISONE
     Route: 065

REACTIONS (10)
  - Bone disorder [Fatal]
  - Febrile neutropenia [Fatal]
  - Anaemia [Fatal]
  - Neutropenia [Fatal]
  - Thrombocytopenia [Fatal]
  - Blood urea increased [Fatal]
  - Blood creatinine increased [Fatal]
  - Blood potassium increased [Fatal]
  - Metabolic acidosis [Fatal]
  - Spinal disorder [Unknown]

NARRATIVE: CASE EVENT DATE: 20240927
